FAERS Safety Report 4641096-1 (Version None)
Quarter: 2005Q2

REPORT INFORMATION
  Report Type: 
  Country: None (occurrence: None)
  Receive Date: 20050419
  Receipt Date: 20050419
  Transmission Date: 20051028
  Serious: Yes (Other)
  Sender: FDA-Public Use
  Company Number: None

PATIENT
  Sex: Male
  Weight: 77.2 kg

DRUGS (1)
  1. CYTARABINE [Suspect]
     Dosage: 1500 MG/M*2 IV AS A ONE HOUR TRANSFUSION GIVE DAILY TIMES 6 DOSES
     Route: 042
     Dates: start: 20050205

REACTIONS (3)
  - FEBRILE NEUTROPENIA [None]
  - PETECHIAE [None]
  - PHARYNGOLARYNGEAL PAIN [None]
